FAERS Safety Report 25452603 (Version 1)
Quarter: 2025Q2

REPORT INFORMATION
  Report Type: Spontaneous
  Country: US (occurrence: US)
  Receive Date: 20250618
  Receipt Date: 20250618
  Transmission Date: 20250717
  Serious: Yes (Death, Life-Threatening, Hospitalization)
  Sender: AMGEN
  Company Number: US-AMGEN-USASP2025118004

PATIENT
  Age: 53 Year
  Sex: Male

DRUGS (1)
  1. PREDNISONE [Suspect]
     Active Substance: PREDNISONE
     Indication: Pulmonary toxicity
     Route: 065

REACTIONS (8)
  - Thrombosis [Fatal]
  - Cardiac arrest [Unknown]
  - Mean arterial pressure decreased [Unknown]
  - Blood lactic acid increased [Unknown]
  - Blood pH decreased [Unknown]
  - PCO2 increased [Unknown]
  - Drug effective for unapproved indication [Unknown]
  - Off label use [Unknown]
